FAERS Safety Report 6041713-8 (Version None)
Quarter: 2009Q1

REPORT INFORMATION
  Report Type: 
  Country: None (occurrence: None)
  Receive Date: 20090116
  Receipt Date: 20090108
  Transmission Date: 20090719
  Serious: Yes (Hospitalization, Other)
  Sender: FDA-Public Use
  Company Number: US-PFIZER INC-2009153494

PATIENT
  Sex: Female

DRUGS (2)
  1. AZULFIDINE EN-TABS [Suspect]
  2. RANIBIZUMAB [Suspect]
     Dosage: UNK
     Dates: start: 20080221

REACTIONS (2)
  - CHEST DISCOMFORT [None]
  - CHEST PAIN [None]
